FAERS Safety Report 5728808-0 (Version None)
Quarter: 2008Q2

REPORT INFORMATION
  Report Type: 
  Country: None (occurrence: None)
  Receive Date: 20080430
  Receipt Date: 20080424
  Transmission Date: 20081010
  Serious: Yes (Life-Threatening, Hospitalization)
  Sender: FDA-Public Use
  Company Number: CC-5013-07080648

PATIENT
  Age: 68 Year
  Sex: Male
  Weight: 75 kg

DRUGS (2)
  1. CC-5013 (LENALIDOMIDE) (CAPSULES) [Suspect]
     Indication: 5Q-SYNDROME
     Dosage: 10 MG, DAILY, ORAL; 5 MG, DAILY, ORAL
     Route: 048
     Dates: start: 20070524, end: 20070606
  2. GRANOCYTE (LENOGRASTIM) [Concomitant]

REACTIONS (3)
  - PLATELET COUNT DECREASED [None]
  - PULMONARY EMBOLISM [None]
  - SPINAL CORD COMPRESSION [None]
